FAERS Safety Report 6160017-6 (Version None)
Quarter: 2009Q2

REPORT INFORMATION
  Report Type: 
  Country: None (occurrence: None)
  Receive Date: 20090416
  Receipt Date: 20090408
  Transmission Date: 20091009
  Serious: Yes (Hospitalization)
  Sender: FDA-Public Use
  Company Number: 09US000671

PATIENT
  Age: 78 Year
  Sex: Male
  Weight: 113.4 kg

DRUGS (4)
  1. COLD COMPL TAB 525 (PARACETAMOL 500 MG, PSEUDOEPHEDRINE HYDROCHLORIDE [Suspect]
     Indication: COUGH
     Dosage: 1-2 TABLETS, ORAL
     Route: 048
     Dates: start: 20090403, end: 20090404
  2. COLD COMPL TAB 525 (PARACETAMOL 500 MG, PSEUDOEPHEDRINE HYDROCHLORIDE [Suspect]
     Indication: NASOPHARYNGITIS
     Dosage: 1-2 TABLETS, ORAL
     Route: 048
     Dates: start: 20090403, end: 20090404
  3. LANOXIN [Concomitant]
  4. SIMVASTATIN [Concomitant]

REACTIONS (6)
  - ASTHENIA [None]
  - EXPIRED DRUG ADMINISTERED [None]
  - FALL [None]
  - JOINT DISLOCATION [None]
  - LIMB DISCOMFORT [None]
  - LOSS OF CONSCIOUSNESS [None]
